FAERS Safety Report 12119410 (Version 1)
Quarter: 2016Q1

REPORT INFORMATION
  Report Type: Spontaneous
  Country: US (occurrence: US)
  Receive Date: 20160226
  Receipt Date: 20160226
  Transmission Date: 20160526
  Serious: Yes (Other)
  Sender: FDA-Public Use
  Company Number: PHEH2016US004027

PATIENT
  Age: 61 Year
  Sex: Male
  Weight: 94.3 kg

DRUGS (20)
  1. EVEROLIMUS [Suspect]
     Active Substance: EVEROLIMUS
     Dosage: 5 MG, UNK
     Route: 065
     Dates: start: 20131224, end: 20141002
  2. CARVEDILOL. [Concomitant]
     Active Substance: CARVEDILOL
     Indication: PRODUCT USED FOR UNKNOWN INDICATION
     Dosage: 1 DF, BID
     Route: 048
     Dates: start: 20160120
  3. GABAPENTIN. [Concomitant]
     Active Substance: GABAPENTIN
     Indication: PRODUCT USED FOR UNKNOWN INDICATION
     Dosage: 1 DF, QD AT BEDTIME
     Route: 048
     Dates: start: 20150612
  4. FUROSEMIDE. [Concomitant]
     Active Substance: FUROSEMIDE
     Indication: PRODUCT USED FOR UNKNOWN INDICATION
     Dosage: 1 DF, BID
     Route: 048
     Dates: start: 20141117
  5. OMEPRAZOLE. [Concomitant]
     Active Substance: OMEPRAZOLE
     Indication: PRODUCT USED FOR UNKNOWN INDICATION
     Dosage: 1 DF, QD PRN
     Route: 048
     Dates: start: 20150604
  6. EVEROLIMUS [Suspect]
     Active Substance: EVEROLIMUS
     Indication: CLEAR CELL RENAL CELL CARCINOMA
     Dosage: 10 MG, UNK
     Route: 065
     Dates: start: 20130725
  7. ATORVASTATIN CALCIUM. [Concomitant]
     Active Substance: ATORVASTATIN CALCIUM
     Indication: PRODUCT USED FOR UNKNOWN INDICATION
     Dosage: 1 DF, QD (1 TABLET EVERY DAY)
     Route: 048
     Dates: start: 20150804
  8. LORATADINE. [Concomitant]
     Active Substance: LORATADINE
     Indication: HYPERSENSITIVITY
     Dosage: 1 DF, QD (IN MORNING)
     Route: 048
  9. ALCOHOL PREP PAD [Concomitant]
     Active Substance: ISOPROPYL ALCOHOL
     Indication: PRODUCT USED FOR UNKNOWN INDICATION
     Dosage: UNK
     Route: 065
     Dates: start: 20140501
  10. TYLENOL [Concomitant]
     Active Substance: ACETAMINOPHEN
     Indication: PRODUCT USED FOR UNKNOWN INDICATION
     Dosage: 2 DF, TID
     Route: 065
     Dates: start: 20150819
  11. TRAMADOL HCL [Concomitant]
     Active Substance: TRAMADOL HYDROCHLORIDE
     Indication: PAIN
     Dosage: Q6H (1-2 TABLETS EVERY 6 HOURS AS NEEDED)
     Route: 048
     Dates: start: 20140627
  12. CALCIUM [Concomitant]
     Active Substance: CALCIUM
     Indication: PRODUCT USED FOR UNKNOWN INDICATION
     Dosage: UNK UNK, BID
     Route: 065
     Dates: start: 20130711
  13. FUROSEMIDE. [Concomitant]
     Active Substance: FUROSEMIDE
     Dosage: 10 MG, BID (EVERY TWELVE HOURS)
     Route: 048
     Dates: start: 20150520
  14. GLUTOSE [Concomitant]
     Active Substance: DEXTROSE
     Indication: BLOOD GLUCOSE DECREASED
     Dosage: UNK UNK, PRN
     Route: 065
     Dates: start: 20150819
  15. HUMULIN R [Concomitant]
     Active Substance: INSULIN HUMAN
     Indication: PRODUCT USED FOR UNKNOWN INDICATION
     Dosage: (INJECTS UNITS AS DIRECTED BASED ON THE BLOOD GLUCOSE)
     Route: 065
     Dates: start: 20150520
  16. LORATADINE. [Concomitant]
     Active Substance: LORATADINE
     Indication: COUGH
  17. INLYTA [Concomitant]
     Active Substance: AXITINIB
     Indication: PRODUCT USED FOR UNKNOWN INDICATION
     Dosage: 3 DF, BID, EVERY TWELEVE HOURS
     Route: 048
     Dates: start: 20150623
  18. RAMIPRIL. [Concomitant]
     Active Substance: RAMIPRIL
     Indication: PRODUCT USED FOR UNKNOWN INDICATION
     Dosage: 1 DF, QD
     Route: 048
     Dates: start: 20150819
  19. AMLODIPINE BESYLATE. [Concomitant]
     Active Substance: AMLODIPINE BESYLATE
     Indication: PRODUCT USED FOR UNKNOWN INDICATION
     Dosage: 1 DF, QD (1 TABLET DAILY)
     Route: 048
     Dates: start: 20150520
  20. HUMULIN 70/30 [Concomitant]
     Active Substance: INSULIN HUMAN
     Indication: PRODUCT USED FOR UNKNOWN INDICATION
     Dosage: 20 U, (BEFORE MEALS)
     Route: 058
     Dates: start: 20150819

REACTIONS (24)
  - Musculoskeletal pain [Unknown]
  - Sleep disorder [Unknown]
  - Tooth loss [Unknown]
  - Hyperglycaemia [Unknown]
  - Diarrhoea [Unknown]
  - Metastases to central nervous system [Unknown]
  - Headache [Unknown]
  - Cough [Unknown]
  - Deafness [Unknown]
  - Central nervous system lesion [Unknown]
  - Pain in extremity [Unknown]
  - Bowel movement irregularity [Unknown]
  - Abdominal discomfort [Unknown]
  - Constipation [Unknown]
  - Fatigue [Unknown]
  - Vision blurred [Unknown]
  - Haemorrhagic diathesis [Unknown]
  - Pruritus [Unknown]
  - Rash [Unknown]
  - Psoriasis [Unknown]
  - Cardiac murmur [Unknown]
  - Malignant neoplasm progression [Unknown]
  - Metastases to lung [Unknown]
  - Arthralgia [Unknown]

NARRATIVE: CASE EVENT DATE: 20131224
